FAERS Safety Report 4330865-3 (Version None)
Quarter: 2004Q1

REPORT INFORMATION
  Report Type: 
  Country: None (occurrence: None)
  Receive Date: 20040331
  Receipt Date: 20040316
  Transmission Date: 20041129
  Serious: Yes (Other)
  Sender: FDA-Public Use
  Company Number: USA040362214

PATIENT
  Age: 77 Year
  Sex: Female
  Weight: 63 kg

DRUGS (1)
  1. FORTEO [Suspect]
     Indication: SPINAL FRACTURE
     Dates: start: 20040101

REACTIONS (4)
  - FALL [None]
  - FLUID RETENTION [None]
  - GROIN PAIN [None]
  - UPPER LIMB FRACTURE [None]
